FAERS Safety Report 9779820 (Version 2)
Quarter: 2014Q1

REPORT INFORMATION
  Report Type: Spontaneous
  Country: IT (occurrence: IT)
  Receive Date: 20131223
  Receipt Date: 20140107
  Transmission Date: 20141002
  Serious: Yes (Other)
  Sender: FDA-Public Use
  Company Number: IT-GLAXOSMITHKLINE-B0954927A

PATIENT
  Age: 68 Year
  Sex: Male

DRUGS (12)
  1. ALKERAN [Suspect]
     Indication: PLASMA CELL MYELOMA
     Dosage: 18MG PER DAY
     Route: 048
     Dates: start: 20130912, end: 20130915
  2. VELCADE [Suspect]
     Indication: PLASMA CELL MYELOMA
     Dosage: 2.6MG CYCLIC
     Route: 042
     Dates: start: 20130912, end: 20130915
  3. DELTACORTENE [Suspect]
     Indication: PLASMA CELL MYELOMA
     Dosage: 100MG PER DAY
     Route: 048
     Dates: start: 20130912, end: 20130915
  4. ZYLORIC [Concomitant]
     Route: 048
  5. PLAVIX [Concomitant]
     Route: 048
  6. TOTALIP [Concomitant]
     Route: 048
     Dates: start: 20130509, end: 20130918
  7. ZOLEDRONIC ACID [Concomitant]
     Route: 042
     Dates: start: 20130904, end: 20130918
  8. BISOPROLOL [Concomitant]
     Route: 048
     Dates: start: 20130509, end: 20130918
  9. ACICLOVIR [Concomitant]
     Route: 048
     Dates: start: 20130509, end: 20130918
  10. FLUCONAZOLE [Concomitant]
     Route: 065
     Dates: start: 20130509, end: 20130918
  11. METFORMIN [Concomitant]
     Route: 048
     Dates: start: 20130509, end: 20130918
  12. NITROGLYCERINE [Concomitant]
     Route: 062
     Dates: start: 20130509, end: 20130918

REACTIONS (1)
  - Angina unstable [Recovered/Resolved]
